FAERS Safety Report 6979917-X (Version None)
Quarter: 2010Q3

REPORT INFORMATION
  Report Type: 
  Country: None (occurrence: None)
  Receive Date: 20100914
  Receipt Date: 20100903
  Transmission Date: 20110219
  Serious: No
  Sender: FDA-Public Use
  Company Number: US-US-EMD SERONO, INC.-7016733

PATIENT
  Sex: Female

DRUGS (9)
  1. REBIF [Suspect]
     Indication: MULTIPLE SCLEROSIS
     Route: 058
     Dates: start: 20091228
  2. ZANTAC [Concomitant]
     Indication: GASTROOESOPHAGEAL REFLUX DISEASE
     Dates: start: 20060101
  3. LOVASTATIN [Concomitant]
     Indication: BLOOD CHOLESTEROL INCREASED
     Dates: start: 20060101
  4. IBUPROFEN [Concomitant]
     Indication: OSTEOARTHRITIS
  5. OXYBUTYNIN CHLORIDE [Concomitant]
     Indication: HYPERTONIC BLADDER
  6. COLACE [Concomitant]
     Indication: CONSTIPATION
  7. DARVOCET [Concomitant]
     Indication: OSTEOARTHRITIS
     Dates: end: 20100817
  8. ASPIRIN [Concomitant]
     Indication: ROUTINE HEALTH MAINTENANCE
  9. GABAPENTIN [Concomitant]
     Indication: NEURALGIA

REACTIONS (2)
  - HEPATIC ENZYME INCREASED [None]
  - UTERINE LEIOMYOMA [None]
